FAERS Safety Report 5612437-3 (Version None)
Quarter: 2008Q1

REPORT INFORMATION
  Report Type: 
  Country: None (occurrence: None)
  Receive Date: 20080204
  Receipt Date: 20080121
  Transmission Date: 20080703
  Serious: Yes (Hospitalization)
  Sender: FDA-Public Use
  Company Number: JP-ROCHE-538931

PATIENT
  Age: 4 Year
  Sex: Male
  Weight: 15 kg

DRUGS (8)
  1. ROCEPHIN [Suspect]
     Indication: PNEUMONIA
     Route: 041
     Dates: start: 20071210, end: 20071213
  2. ROCEPHIN [Suspect]
     Route: 041
     Dates: start: 20071220, end: 20071227
  3. WARFARIN SODIUM [Concomitant]
     Route: 048
     Dates: start: 20031001
  4. ASPIRIN [Concomitant]
     Dosage: ORAL FORMULATION (NOT SPECIFIED)
     Route: 048
     Dates: start: 20031001
  5. ONON [Concomitant]
     Dosage: DRUG REPORTED: ONON DRYSYRUP
     Route: 048
     Dates: start: 20060510
  6. HOKUNALIN [Concomitant]
     Route: 048
     Dates: start: 20071204
  7. MUCODYNE [Concomitant]
     Route: 048
     Dates: start: 20071204
  8. TELGIN G [Concomitant]
     Route: 048
     Dates: start: 20071204

REACTIONS (1)
  - CALCULUS URINARY [None]
